FAERS Safety Report 22152561 (Version 6)
Quarter: 2024Q1

REPORT INFORMATION
  Report Type: Other
  Country: AU (occurrence: None)
  Receive Date: 20230329
  Receipt Date: 20240311
  Transmission Date: 20240410
  Serious: Yes (Hospitalization, Other)
  Sender: FDA-Public Use
  Company Number: AU-ROCHE-3294060

PATIENT
  Sex: Female

DRUGS (2)
  1. OCREVUS [Suspect]
     Active Substance: OCRELIZUMAB
     Indication: Relapsing-remitting multiple sclerosis
     Dosage: LAST DOSE WAS ON 23/AUG/2022.
     Route: 041
     Dates: start: 20180823
  2. LAMICTAL [Concomitant]
     Active Substance: LAMOTRIGINE

REACTIONS (6)
  - Viral infection [Recovered/Resolved]
  - Haemorrhage in pregnancy [Recovered/Resolved]
  - Epilepsy [Unknown]
  - Depression [Unknown]
  - Migraine [Unknown]
  - Maternal exposure before pregnancy [Unknown]
